FAERS Safety Report 15792507 (Version 3)
Quarter: 2019Q1

REPORT INFORMATION
  Report Type: Spontaneous
  Country: US (occurrence: US)
  Receive Date: 20190107
  Receipt Date: 20190326
  Transmission Date: 20190417
  Serious: Yes (Death, Hospitalization)
  Sender: FDA-Public Use
  Company Number: US-JNJFOC-20181233277

PATIENT
  Age: 78 Year
  Sex: Female

DRUGS (4)
  1. COUMADIN [Suspect]
     Active Substance: WARFARIN SODIUM
     Indication: PRODUCT USED FOR UNKNOWN INDICATION
     Route: 065
  2. XARELTO [Suspect]
     Active Substance: RIVAROXABAN
     Indication: CEREBROVASCULAR ACCIDENT PROPHYLAXIS
     Dosage: 20 MG DAILY THEN 15 MG DAILY
     Route: 048
     Dates: start: 20150505, end: 20161220
  3. XARELTO [Suspect]
     Active Substance: RIVAROXABAN
     Indication: THROMBOSIS PROPHYLAXIS
     Dosage: 20 MG DAILY THEN 15 MG DAILY
     Route: 048
     Dates: start: 20150505, end: 20161220
  4. XARELTO [Suspect]
     Active Substance: RIVAROXABAN
     Indication: ATRIAL FIBRILLATION
     Dosage: 20 MG DAILY THEN 15 MG DAILY
     Route: 048
     Dates: start: 20150505, end: 20161220

REACTIONS (6)
  - Pneumonia staphylococcal [Fatal]
  - Upper gastrointestinal haemorrhage [Unknown]
  - Respiratory failure [Fatal]
  - Mallory-Weiss syndrome [Unknown]
  - Haemorrhagic transformation stroke [Fatal]
  - Hypovolaemic shock [Unknown]

NARRATIVE: CASE EVENT DATE: 201612
